FAERS Safety Report 7433950-2 (Version None)
Quarter: 2011Q2

REPORT INFORMATION
  Report Type: 
  Country: None (occurrence: None)
  Receive Date: 20110425
  Receipt Date: 20110413
  Transmission Date: 20111010
  Serious: Yes (Hospitalization)
  Sender: FDA-Public Use
  Company Number: US-JNJFOC-20110406845

PATIENT
  Sex: Female
  Weight: 93.44 kg

DRUGS (2)
  1. FENTANYL-100 [Suspect]
     Indication: MUSCULOSKELETAL PAIN
     Dosage: 2 PATCHES OF 12.5 UG/HR
     Route: 062
  2. FENTANYL-100 [Suspect]
     Dosage: STOPPED ON IN APR-2011
     Route: 062

REACTIONS (3)
  - MALAISE [None]
  - PAIN [None]
  - DRUG INEFFECTIVE [None]
